FAERS Safety Report 24039523 (Version 1)
Quarter: 2024Q3

REPORT INFORMATION
  Report Type: Spontaneous
  Country: US (occurrence: US)
  Receive Date: 20240702
  Receipt Date: 20240702
  Transmission Date: 20241016
  Serious: No
  Sender: AMGEN
  Company Number: US-AMGEN-USASP2024126469

PATIENT
  Age: 75 Year
  Sex: Male

DRUGS (2)
  1. RIABNI [Suspect]
     Active Substance: RITUXIMAB-ARRX
     Indication: Tonsil cancer
     Dosage: UNK (ONE 500 MG VIAL AND FOUR 100 MG VIALS 500 MG )
     Route: 065
  2. RIABNI [Suspect]
     Active Substance: RITUXIMAB-ARRX
     Dosage: UNK (ONE 500 MG VIAL AND FOUR 100 MG VIALS 500 MG)
     Route: 065

REACTIONS (3)
  - Cough [Unknown]
  - Malaise [Unknown]
  - Off label use [Unknown]

NARRATIVE: CASE EVENT DATE: 20240525
